FAERS Safety Report 4364311-0 (Version None)
Quarter: 2004Q2

REPORT INFORMATION
  Report Type: 
  Country: None (occurrence: None)
  Receive Date: 20040525
  Receipt Date: 20040304
  Transmission Date: 20050107
  Serious: Yes (Hospitalization, Disabling, Other)
  Sender: FDA-Public Use
  Company Number: PHEH2004US02706

PATIENT
  Age: 52 Year
  Sex: Female

DRUGS (11)
  1. ZELNORM [Suspect]
     Dosage: UNK/UNK
     Route: 048
  2. ADVIL [Concomitant]
  3. METOCLOPRAMIDE [Concomitant]
  4. OMEPRAZOLE [Concomitant]
  5. ALTACE [Concomitant]
  6. POTASSIUM CHLORIDE [Concomitant]
  7. FUROSEMIDE [Concomitant]
  8. EFFEXOR [Concomitant]
  9. LANTUS [Concomitant]
  10. ZOCOR [Concomitant]
  11. HYDROCODONE [Concomitant]

REACTIONS (16)
  - BIOPSY LIVER ABNORMAL [None]
  - BIOPSY SITE UNSPECIFIED ABNORMAL [None]
  - CHEST PAIN [None]
  - CHEST X-RAY ABNORMAL [None]
  - DYSPNOEA [None]
  - GRANULOMA [None]
  - INFECTION [None]
  - LIVER FUNCTION TEST ABNORMAL [None]
  - OSTEOARTHRITIS [None]
  - PAIN EXACERBATED [None]
  - PAIN IN EXTREMITY [None]
  - SARCOIDOSIS [None]
  - SKIN DESQUAMATION [None]
  - SKIN LESION [None]
  - SKIN ULCER [None]
  - STEVENS-JOHNSON SYNDROME [None]
